FAERS Safety Report 18003054 (Version 1)
Quarter: 2020Q3

REPORT INFORMATION
  Report Type: Report from Study
  Country: None (occurrence: ZA)
  Receive Date: 20200710
  Receipt Date: 20200710
  Transmission Date: 20201103
  Serious: Yes (Hospitalization, Other)
  Sender: FDA-Public Use
  Company Number: ZA-ABBVIE-20K-143-3473934-00

PATIENT
  Sex: Female

DRUGS (1)
  1. HUMIRA [Suspect]
     Active Substance: ADALIMUMAB
     Indication: ANKYLOSING SPONDYLITIS
     Route: 058
     Dates: start: 20190926

REACTIONS (7)
  - Eye injury [Unknown]
  - Eye inflammation [Not Recovered/Not Resolved]
  - Thrombosis [Recovered/Resolved]
  - Organ failure [Unknown]
  - Malignant melanoma [Recovered/Resolved]
  - Eye pain [Not Recovered/Not Resolved]
  - Eye swelling [Not Recovered/Not Resolved]
